FAERS Safety Report 9250571 (Version 1)
Quarter: 2013Q1

REPORT INFORMATION
  Report Type: Spontaneous
  Country: US (occurrence: None)
  Receive Date: 20130305
  Receipt Date: 20130305
  Transmission Date: 20140127
  Serious: Yes (Other)
  Sender: FDA-Public Use
  Company Number: 163-21880-12040496

PATIENT
  Age: 42 Year
  Sex: Male
  Weight: 134.27 kg

DRUGS (10)
  1. REVLIMID (LENALIDOMIDE) (25 MILLIGRAM, CAPSULES) [Suspect]
     Indication: PLASMA CELL MYELOMA
     Dosage: 25MG, X 21 DAYS, PO
     Route: 048
     Dates: start: 201012
  2. ALPHA LIPOIC (THIOTIC ACID) [Concomitant]
  3. DECADRON (DEXAMETHASONE) [Concomitant]
  4. FENOFIBRATE (FENOFIBRATE) (FENOFIBRATE) [Concomitant]
  5. GABAPENTIN (GABAPENTIN) [Concomitant]
  6. HCTZ (HYDROCHLOROTHIAZIDE) [Concomitant]
  7. LISINOPRIL (LISINOPRIL) [Concomitant]
  8. MAGNESIUM (MAGNESIUM) [Concomitant]
  9. NIASPAN (NICOTINIC ACID) [Concomitant]
  10. OMEPRAZOLE (OMEPRAZOLE) [Concomitant]

REACTIONS (1)
  - Thrombosis [None]
